FAERS Safety Report 5233476-0 (Version None)
Quarter: 2007Q1

REPORT INFORMATION
  Report Type: 
  Country: None (occurrence: None)
  Receive Date: 20061208
  Receipt Date: 20040712
  Transmission Date: 20070707
  Serious: Yes (Other)
  Sender: FDA-Public Use
  Company Number: 2004UW14336

PATIENT
  Age: 58 Year
  Sex: Female
  Weight: 90.718 kg

DRUGS (9)
  1. CRESTOR [Suspect]
     Indication: BLOOD CHOLESTEROL INCREASED
     Dosage: 20 MG QD PO
     Route: 048
  2. CRESTOR [Suspect]
     Indication: BLOOD CHOLESTEROL INCREASED
     Dosage: 10 MG QD PO
     Route: 048
  3. RANITIDINE [Concomitant]
  4. ASPIRIN [Concomitant]
  5. THYROID MEDICINE [Concomitant]
  6. QUININE [Concomitant]
  7. VITAMIN [Concomitant]
  8. CALCIUM [Concomitant]
  9. ASCORBIC ACID [Concomitant]

REACTIONS (7)
  - CHEST PAIN [None]
  - CONSTIPATION [None]
  - HAEMATOCHEZIA [None]
  - HAEMORRHOIDS [None]
  - HYPOAESTHESIA [None]
  - MYALGIA [None]
  - PAIN IN EXTREMITY [None]
